FAERS Safety Report 14434548 (Version 1)
Quarter: 2018Q1

REPORT INFORMATION
  Report Type: Spontaneous
  Country: US (occurrence: US)
  Receive Date: 20180124
  Receipt Date: 20180124
  Transmission Date: 20180509
  Serious: No
  Sender: FDA-Public Use
  Company Number: US-TARO-2017TAR00919

PATIENT
  Age: 52 Year
  Sex: Female
  Weight: 63.49 kg

DRUGS (1)
  1. DESOXIMETASONE CREAM USP 0.25% [Suspect]
     Active Substance: DESOXIMETASONE
     Indication: DERMATITIS
     Dosage: UNK UNK, 2X/DAY
     Route: 061
     Dates: start: 201709

REACTIONS (2)
  - Drug ineffective [Recovered/Resolved]
  - Product quality issue [Recovered/Resolved]

NARRATIVE: CASE EVENT DATE: 201709
